FAERS Safety Report 4949583-3 (Version None)
Quarter: 2006Q1

REPORT INFORMATION
  Report Type: 
  Country: None (occurrence: None)
  Receive Date: 20060315
  Receipt Date: 20060302
  Transmission Date: 20060701
  Serious: Yes (Death)
  Sender: FDA-Public Use
  Company Number: US200603000905

PATIENT
  Sex: 0

DRUGS (1)
  1. ZYPREXA [Suspect]

REACTIONS (2)
  - HYPERTENSIVE HEART DISEASE [None]
  - PHARMACEUTICAL PRODUCT COMPLAINT [None]
